FAERS Safety Report 19005366 (Version 2)
Quarter: 2021Q1

REPORT INFORMATION
  Report Type: Spontaneous
  Country: US (occurrence: US)
  Receive Date: 20210312
  Receipt Date: 20210326
  Transmission Date: 20210420
  Serious: No
  Sender: FDA-Public Use
  Company Number: US-LUPIN PHARMACEUTICALS INC.-2021-03075

PATIENT
  Sex: Female

DRUGS (1)
  1. BUDESONIDE INHALATION SUSPENSION, 0.5 MG/2 ML [Suspect]
     Active Substance: BUDESONIDE
     Indication: ASTHMA
     Dosage: UNK
     Dates: start: 20210217

REACTIONS (4)
  - Liquid product physical issue [Unknown]
  - No adverse event [Unknown]
  - Poor quality product administered [Unknown]
  - Product taste abnormal [Unknown]
